FAERS Safety Report 6279729-9 (Version None)
Quarter: 2009Q3

REPORT INFORMATION
  Report Type: 
  Country: None (occurrence: None)
  Receive Date: 20090721
  Receipt Date: 20090713
  Transmission Date: 20100115
  Serious: Yes (Hospitalization)
  Sender: FDA-Public Use
  Company Number: WAES  0403USA02322

PATIENT
  Age: 34 Year
  Sex: Female

DRUGS (39)
  1. CRIXIVAN [Suspect]
     Indication: HIV INFECTION
     Dosage: 2.4 GM/DAILY PO, 1.2 GM DAILY PO
     Route: 048
     Dates: start: 19980831, end: 19980909
  2. CRIXIVAN [Suspect]
     Indication: HIV INFECTION
     Dosage: 2.4 GM/DAILY PO, 1.2 GM DAILY PO
     Route: 048
     Dates: start: 20000310, end: 20001027
  3. CAP STOCRIN [Suspect]
     Indication: HIV INFECTION
     Dosage: 600 MG  DAILY PO
     Route: 048
     Dates: start: 20000310, end: 20001027
  4. CAP STOCRIN [Suspect]
     Indication: HIV INFECTION
     Dosage: 600 MG  DAILY PO
     Route: 048
     Dates: start: 20010130
  5. RITONAVIR [Suspect]
     Indication: HIV INFECTION
     Dosage: 400 MG DAILY PO
     Route: 048
     Dates: start: 20000310, end: 20001027
  6. ABACAVIR SULFATE [Suspect]
     Indication: HIV INFECTION
     Dosage: 300 MG BID PO
     Route: 048
     Dates: start: 20010130
  7. LOPINAVIR AND RITONAVIR [Suspect]
     Indication: HIV INFECTION
     Dosage: 6 CAPSULE DAILY PO
     Route: 048
     Dates: start: 20010130
  8. CLARITHROMYCIN [Suspect]
     Indication: INFECTION
     Dosage: 200 MG TID PO, 800 MG DAILY PO
     Route: 048
     Dates: start: 19981008, end: 19981201
  9. CLARITHROMYCIN [Suspect]
     Indication: MYCOBACTERIUM AVIUM COMPLEX INFECTION
     Dosage: 200 MG TID PO, 800 MG DAILY PO
     Route: 048
     Dates: start: 19981008, end: 19981201
  10. CLARITHROMYCIN [Suspect]
     Indication: INFECTION
     Dosage: 200 MG TID PO, 800 MG DAILY PO
     Route: 048
     Dates: start: 20001028
  11. CLARITHROMYCIN [Suspect]
     Indication: MYCOBACTERIUM AVIUM COMPLEX INFECTION
     Dosage: 200 MG TID PO, 800 MG DAILY PO
     Route: 048
     Dates: start: 20001028
  12. ETHAMBUTOL HYDROCHLORIDE [Suspect]
     Indication: MYCOBACTERIUM AVIUM COMPLEX INFECTION
     Dosage: 500 MG DAILY PO, 250 MG BID PO
     Route: 048
     Dates: start: 19981025, end: 19981201
  13. ETHAMBUTOL HYDROCHLORIDE [Suspect]
     Indication: MYCOBACTERIUM AVIUM COMPLEX INFECTION
     Dosage: 500 MG DAILY PO, 250 MG BID PO
     Route: 048
     Dates: start: 19981212, end: 19990614
  14. ETHAMBUTOL HYDROCHLORIDE [Suspect]
     Indication: MYCOBACTERIUM AVIUM COMPLEX INFECTION
     Dosage: 500 MG DAILY PO, 250 MG BID PO
     Route: 048
     Dates: start: 20001028, end: 20010101
  15. TAB BAKTAR (SULFAMETHOXAZLE/TRIMETHOPRIM) [Suspect]
     Indication: ALLERGENIC DESENSITISATION PROCEDURE
     Dosage: SEE IMAGE
     Route: 048
     Dates: start: 20001219, end: 20001219
  16. TAB BAKTAR (SULFAMETHOXAZLE/TRIMETHOPRIM) [Suspect]
     Indication: ALLERGENIC DESENSITISATION PROCEDURE
     Dosage: SEE IMAGE
     Route: 048
     Dates: start: 20001220, end: 20001220
  17. TAB BAKTAR (SULFAMETHOXAZLE/TRIMETHOPRIM) [Suspect]
     Indication: ALLERGENIC DESENSITISATION PROCEDURE
     Dosage: SEE IMAGE
     Route: 048
     Dates: start: 20001221, end: 20001221
  18. TAB BAKTAR (SULFAMETHOXAZLE/TRIMETHOPRIM) [Suspect]
     Indication: ALLERGENIC DESENSITISATION PROCEDURE
     Dosage: SEE IMAGE
     Route: 048
     Dates: start: 20001222, end: 20001222
  19. TAB BAKTAR (SULFAMETHOXAZLE/TRIMETHOPRIM) [Suspect]
     Indication: ALLERGENIC DESENSITISATION PROCEDURE
     Dosage: SEE IMAGE
     Route: 048
     Dates: start: 20001222, end: 20001222
  20. TAB BAKTAR (SULFAMETHOXAZLE/TRIMETHOPRIM) [Suspect]
     Indication: ALLERGENIC DESENSITISATION PROCEDURE
     Dosage: SEE IMAGE
     Route: 048
     Dates: start: 20001222, end: 20001222
  21. TAB BAKTAR (SULFAMETHOXAZLE/TRIMETHOPRIM) [Suspect]
     Indication: ALLERGENIC DESENSITISATION PROCEDURE
     Dosage: SEE IMAGE
     Route: 048
     Dates: start: 20001223, end: 20010112
  22. TAB BAKTAR (SULFAMETHOXAZLE/TRIMETHOPRIM) [Suspect]
     Indication: ALLERGENIC DESENSITISATION PROCEDURE
     Dosage: SEE IMAGE
     Route: 048
     Dates: start: 20010113, end: 20020319
  23. FOSCAVIR [Suspect]
     Indication: CYTOMEGALOVIRUS INFECTION
     Dosage: 180 MG/KG DAILY IV, 90 MG/KG DAILY IV, 98 MG/KG DAILY IV, 65 MG/KG DAILY IV,
     Route: 042
     Dates: start: 20000125, end: 20000214
  24. FOSCAVIR [Suspect]
     Indication: CYTOMEGALOVIRUS INFECTION
     Dosage: 180 MG/KG DAILY IV, 90 MG/KG DAILY IV, 98 MG/KG DAILY IV, 65 MG/KG DAILY IV,
     Route: 042
     Dates: start: 20000215, end: 20000303
  25. FOSCAVIR [Suspect]
     Indication: CYTOMEGALOVIRUS INFECTION
     Dosage: 180 MG/KG DAILY IV, 90 MG/KG DAILY IV, 98 MG/KG DAILY IV, 65 MG/KG DAILY IV,
     Route: 042
     Dates: start: 20000404, end: 20000406
  26. FOSCAVIR [Suspect]
     Indication: CYTOMEGALOVIRUS INFECTION
     Dosage: 180 MG/KG DAILY IV, 90 MG/KG DAILY IV, 98 MG/KG DAILY IV, 65 MG/KG DAILY IV,
     Route: 042
     Dates: start: 20000407, end: 20000426
  27. LACTEC D [Concomitant]
  28. SOLITA T-3 [Concomitant]
  29. CIPROFLOXACIN HCL [Concomitant]
  30. DEXTROSE [Concomitant]
  31. HYDROCORTISONE [Concomitant]
  32. HYDROCORTISONE SODIUM PHOSPHATE [Concomitant]
  33. HYDROXYZINE HYDROCHLORIDE [Concomitant]
  34. LAMIVUDINE [Concomitant]
  35. MORPHINE HCL ELIXIR [Concomitant]
  36. PREDNISOLONE [Concomitant]
  37. RIFAMPIN [Concomitant]
  38. ROXITHROMYCIN [Concomitant]
  39. ZIDOVUDINE [Concomitant]

REACTIONS (16)
  - BACK PAIN [None]
  - BLOOD ALKALINE PHOSPHATASE INCREASED [None]
  - BLOOD SODIUM DECREASED [None]
  - CALCULUS URINARY [None]
  - CREATININE RENAL CLEARANCE DECREASED [None]
  - CYTOMEGALOVIRUS CHORIORETINITIS [None]
  - DECREASED APPETITE [None]
  - DEHYDRATION [None]
  - DIZZINESS [None]
  - DRUG INEFFECTIVE [None]
  - ELECTROLYTE IMBALANCE [None]
  - GAMMA-GLUTAMYLTRANSFERASE INCREASED [None]
  - HYPERLIPIDAEMIA [None]
  - MYCOBACTERIUM AVIUM COMPLEX INFECTION [None]
  - NAUSEA [None]
  - WEIGHT DECREASED [None]
